FAERS Safety Report 21660889 (Version 2)
Quarter: 2022Q4

REPORT INFORMATION
  Report Type: Spontaneous
  Country: US (occurrence: US)
  Receive Date: 20221130
  Receipt Date: 20221229
  Transmission Date: 20230112
  Serious: Yes (Other)
  Sender: FDA-Public Use
  Company Number: US-002147023-NVSC2022US265544

PATIENT
  Sex: Female

DRUGS (2)
  1. VOTRIENT [Suspect]
     Active Substance: PAZOPANIB HYDROCHLORIDE
     Indication: Soft tissue neoplasm
     Dosage: 800 MG, QD
     Route: 048
     Dates: start: 20221019
  2. VOTRIENT [Suspect]
     Active Substance: PAZOPANIB HYDROCHLORIDE
     Indication: Bone neoplasm

REACTIONS (9)
  - Oxygen saturation decreased [Unknown]
  - Cerebral congestion [Unknown]
  - Confusional state [Unknown]
  - Memory impairment [Unknown]
  - Dyspnoea [Unknown]
  - Diarrhoea [Unknown]
  - Hair colour changes [Unknown]
  - Alopecia [Unknown]
  - Dry skin [Unknown]
